FAERS Safety Report 9617789 (Version 1)
Quarter: 2013Q4

REPORT INFORMATION
  Report Type: Report from Study
  Country: NL (occurrence: NL)
  Receive Date: 20131011
  Receipt Date: 20131011
  Transmission Date: 20140711
  Serious: Yes (Other)
  Sender: FDA-Public Use
  Company Number: NL-ABBVIE-13P-114-1154791-00

PATIENT
  Age: 48 Year
  Sex: Female
  Weight: 74 kg

DRUGS (3)
  1. LUCRIN DEPOT [Suspect]
     Indication: LEIOMYOMA
     Route: 058
     Dates: start: 201204, end: 201210
  2. LUCRIN DEPOT [Suspect]
     Indication: LEIOMYOMA
     Route: 058
     Dates: start: 20131002
  3. THYRAX [Concomitant]
     Indication: HYPOTHYROIDISM
     Route: 048
     Dates: start: 2012

REACTIONS (1)
  - Metrorrhagia [Recovered/Resolved]
